FAERS Safety Report 8469553-0 (Version None)
Quarter: 2012Q2

REPORT INFORMATION
  Report Type: 
  Country: None (occurrence: None)
  Receive Date: 20120626
  Receipt Date: 20120620
  Transmission Date: 20120825
  Serious: Yes (Hospitalization)
  Sender: FDA-Public Use
  Company Number: CA-JNJFOC-20110412537

PATIENT
  Sex: Male
  Weight: 81.19 kg

DRUGS (5)
  1. ZOPICLONE [Concomitant]
     Indication: INSOMNIA
     Route: 065
     Dates: start: 20110125
  2. MINOXIDIL [Suspect]
     Indication: ALOPECIA
     Route: 061
  3. ZOPICLONE [Concomitant]
     Indication: NERVOUSNESS
     Route: 065
     Dates: start: 20110125
  4. ROGAINE [Suspect]
     Route: 061
  5. ROGAINE [Suspect]
     Indication: ALOPECIA
     Route: 061

REACTIONS (35)
  - FOLLICULITIS [None]
  - HYPERTRICHOSIS [None]
  - APPLICATION SITE REACTION [None]
  - APPLICATION SITE ULCER [None]
  - ECZEMA [None]
  - LETHARGY [None]
  - URINE ANALYSIS ABNORMAL [None]
  - POLLAKIURIA [None]
  - NEURODERMATITIS [None]
  - MEDICATION RESIDUE [None]
  - TESTICULAR PAIN [None]
  - URINARY INCONTINENCE [None]
  - NERVOUS SYSTEM DISORDER [None]
  - EAR INFECTION [None]
  - ACARODERMATITIS [None]
  - ACCIDENTAL EXPOSURE [None]
  - SWELLING [None]
  - CELLULITIS [None]
  - BLOOD TEST ABNORMAL [None]
  - SKIN INFECTION [None]
  - APPLICATION SITE PAIN [None]
  - BURNING SENSATION [None]
  - HAIR TEXTURE ABNORMAL [None]
  - APPLICATION SITE INFECTION [None]
  - HEADACHE [None]
  - HAIR GROWTH ABNORMAL [None]
  - INFECTION [None]
  - ACTIVITIES OF DAILY LIVING IMPAIRED [None]
  - SCAR [None]
  - LOSS OF CONSCIOUSNESS [None]
  - OVERDOSE [None]
  - SUBCUTANEOUS ABSCESS [None]
  - ALOPECIA [None]
  - ABDOMINAL PAIN [None]
  - MALAISE [None]
